FAERS Safety Report 18309245 (Version 3)
Quarter: 2022Q1

REPORT INFORMATION
  Report Type: Spontaneous
  Country: US (occurrence: US)
  Receive Date: 20200924
  Receipt Date: 20220210
  Transmission Date: 20220424
  Serious: Yes (Other)
  Sender: FDA-Public Use
  Company Number: US-SAARTEMIS-SAC202009220531

PATIENT
  Age: 54 Year
  Sex: Male

DRUGS (2)
  1. ZANTAC [Suspect]
     Active Substance: RANITIDINE HYDROCHLORIDE
     Indication: Dyspepsia
     Dosage: 75 MG, QD
     Dates: start: 198402
  2. ZANTAC [Suspect]
     Active Substance: RANITIDINE HYDROCHLORIDE
     Dosage: 150 MG, QD
     Dates: end: 200902

REACTIONS (1)
  - Prostate cancer stage III [Unknown]

NARRATIVE: CASE EVENT DATE: 20090101
